FAERS Safety Report 4899527-8 (Version None)
Quarter: 2006Q1

REPORT INFORMATION
  Report Type: 
  Country: None (occurrence: None)
  Receive Date: 20060118
  Receipt Date: 20050805
  Transmission Date: 20060701
  Serious: Yes (Other)
  Sender: FDA-Public Use
  Company Number: 2005001533

PATIENT
  Age: 77 Year
  Sex: Female

DRUGS (2)
  1. TARCEVA [Suspect]
     Indication: LUNG NEOPLASM MALIGNANT
     Dosage: ORAL
     Route: 048
     Dates: start: 20050330, end: 20050409
  2. CYANOCOBALAMIN/PYRIDOXINE HCL/THIAMINE HCL [Concomitant]

REACTIONS (1)
  - SKIN EXFOLIATION [None]
